FAERS Safety Report 7103059-6 (Version None)
Quarter: 2010Q4

REPORT INFORMATION
  Report Type: 
  Country: None (occurrence: None)
  Receive Date: 20101109
  Receipt Date: 20101102
  Transmission Date: 20110411
  Serious: Yes (Death)
  Sender: FDA-Public Use
  Company Number: 20109373

PATIENT
  Sex: Male

DRUGS (5)
  1. LIORESAL [Suspect]
     Indication: MUSCLE SPASTICITY
     Dosage: DAILY, INTRATHECAL
     Route: 037
  2. DILDAUDID [Concomitant]
  3. BUPIVACAINE HCL [Concomitant]
  4. CLONIDINE [Concomitant]
  5. DROPERIDOL [Concomitant]

REACTIONS (2)
  - METASTASES TO BONE [None]
  - RENAL CANCER METASTATIC [None]
